FAERS Safety Report 8361085-3 (Version None)
Quarter: 2012Q2

REPORT INFORMATION
  Report Type: 
  Country: None (occurrence: None)
  Receive Date: 20120515
  Receipt Date: 20120507
  Transmission Date: 20120825
  Serious: Yes (Hospitalization, Other)
  Sender: FDA-Public Use
  Company Number: US-BAYER-2011-107999

PATIENT
  Age: 27 Year
  Sex: Female
  Weight: 45.805 kg

DRUGS (14)
  1. YAZ [Suspect]
     Indication: CONTRACEPTION
     Dosage: UNK
     Route: 048
     Dates: start: 20070101, end: 20090401
  2. SERTRALINE HYDROCHLORIDE [Concomitant]
     Indication: DEPRESSION
     Dosage: 1 TABLET, QD
  3. SERTRALINE HYDROCHLORIDE [Concomitant]
     Dosage: 100 MG,1/4TH QHS (AT BEDTIME)
  4. DICYCLOMINE [Concomitant]
     Indication: IRRITABLE BOWEL SYNDROME
     Dosage: 1 TABLET, QD
     Dates: start: 20081028, end: 20081117
  5. DICYCLOMINE [Concomitant]
     Indication: NAUSEA
  6. BUTALBITAL [Concomitant]
     Indication: MIGRAINE
     Dosage: UNK
     Dates: start: 20080101
  7. YAZ [Suspect]
     Indication: ENDOMETRIOSIS
  8. FLAX SEED OIL [Concomitant]
     Dosage: APPROXIMATELY 3 DAYS A WEEK
  9. SERTRALINE HYDROCHLORIDE [Concomitant]
     Dosage: 100 MG ; 1/2 BEDTIME
  10. TRAMADOL HYDROCHLORIDE [Concomitant]
     Dosage: 50 MG, QID PRN
     Route: 048
     Dates: start: 20080813
  11. IMITREX [Concomitant]
     Indication: MIGRAINE
     Dosage: UNK
     Dates: start: 20080101
  12. XANAX [Concomitant]
     Indication: ANXIETY
     Dosage: 2 MG, AS NEEDED QD
     Dates: start: 20081028, end: 20081117
  13. MULTI-VITAMINS [Concomitant]
     Dosage: APPROXIMATELY 3 DAYS A WEEK
  14. ZOLPIDEM [Concomitant]
     Indication: INSOMNIA
     Dosage: 1 TABLET, QD
     Dates: start: 20081028, end: 20081117

REACTIONS (14)
  - CONVULSION [None]
  - PAIN [None]
  - INSOMNIA [None]
  - GENERAL PHYSICAL HEALTH DETERIORATION [None]
  - CONTUSION [None]
  - ANXIETY [None]
  - NECK PAIN [None]
  - DISCOMFORT [None]
  - EMOTIONAL DISTRESS [None]
  - TREMOR [None]
  - DIZZINESS [None]
  - VERTIGO [None]
  - MIGRAINE [None]
  - LOSS OF CONSCIOUSNESS [None]
